FAERS Safety Report 16692452 (Version 5)
Quarter: 2022Q4

REPORT INFORMATION
  Report Type: Spontaneous
  Country: US (occurrence: US)
  Receive Date: 20190812
  Receipt Date: 20221229
  Transmission Date: 20230113
  Serious: No
  Sender: FDA-Public Use
  Company Number: US-PFIZER INC-2019341501

PATIENT
  Age: 72 Year
  Sex: Female
  Weight: 81.65 kg

DRUGS (11)
  1. LEVOXYL [Suspect]
     Active Substance: LEVOTHYROXINE SODIUM
     Indication: Hypothyroidism
     Dosage: 0.125 UG, DAILY
     Route: 048
     Dates: start: 1990
  2. LEVOXYL [Suspect]
     Active Substance: LEVOTHYROXINE SODIUM
     Dosage: 0.125 UG, DAILY
     Route: 048
     Dates: start: 1993
  3. LEVOXYL [Suspect]
     Active Substance: LEVOTHYROXINE SODIUM
     Dosage: UNK
  4. LEVOXYL [Suspect]
     Active Substance: LEVOTHYROXINE SODIUM
     Dosage: 0.15 UG, WEEKLY (ONE TABLET WEEKLY BY MOUTH)
     Route: 048
  5. LEVOXYL [Suspect]
     Active Substance: LEVOTHYROXINE SODIUM
     Dosage: 100 UG (ONE TABLET DAILY BY MOUTH FOR 6 DAYS); (100MCG SIX DAYS A WEEK)
     Route: 048
  6. LEVOXYL [Suspect]
     Active Substance: LEVOTHYROXINE SODIUM
     Dosage: 150 UG, WEEKLY (ONE DAY A WEEK )
  7. LISINOPRIL [Concomitant]
     Active Substance: LISINOPRIL
     Indication: Blood pressure abnormal
     Dosage: 10 MG, 1X/DAY
     Route: 048
     Dates: start: 2014, end: 2019
  8. AMLODIPINE [Concomitant]
     Active Substance: AMLODIPINE BESYLATE
     Indication: Blood pressure abnormal
     Dosage: 10 MG, 1X/DAY
     Route: 048
     Dates: start: 201907
  9. VITAMIN B12 [Concomitant]
     Active Substance: CYANOCOBALAMIN
     Indication: Supplementation therapy
     Dosage: 1000 IU (1000 UNITS OVER THE COUNTER)
     Dates: start: 2014
  10. LOSARTAN POTASSIUM [Concomitant]
     Active Substance: LOSARTAN POTASSIUM
     Dosage: UNK
  11. TYROSINE [Concomitant]
     Active Substance: TYROSINE
     Dosage: UNK

REACTIONS (6)
  - Weight increased [Not Recovered/Not Resolved]
  - Bone pain [Not Recovered/Not Resolved]
  - Swelling [Not Recovered/Not Resolved]
  - Fatigue [Unknown]
  - Dysphagia [Unknown]
  - Odynophagia [Unknown]

NARRATIVE: CASE EVENT DATE: 20140101
